FAERS Safety Report 15534024 (Version 1)
Quarter: 2018Q4

REPORT INFORMATION
  Report Type: Spontaneous
  Country: FR (occurrence: FR)
  Receive Date: 20181019
  Receipt Date: 20181019
  Transmission Date: 20190205
  Serious: Yes (Hospitalization)
  Sender: FDA-Public Use
  Company Number: FR-TEVA-2018-FR-965587

PATIENT
  Age: 48 Year
  Sex: Female

DRUGS (7)
  1. AMITRIPTYLINE [Concomitant]
     Active Substance: AMITRIPTYLINE
     Dosage: 100 MILLIGRAM DAILY;
     Route: 048
  2. INEXIUM 40 MG, COMPRIM? GASTRO-R?SISTANT [Concomitant]
     Active Substance: ESOMEPRAZOLE
     Dosage: 40 DOSAGE FORMS DAILY;
     Route: 048
  3. IBUPROFENE [Suspect]
     Active Substance: IBUPROFEN
     Indication: TOOTHACHE
     Dosage: 100 MILLIGRAM DAILY;
     Route: 048
     Dates: start: 20150219, end: 20150219
  4. METEOXANE [Concomitant]
     Active Substance: AMOBARBITAL\BELLADONNA LEAF\DIMETHICONE\ERGOTAMINE TARTRATE
     Dosage: 6 DOSAGE FORMS DAILY;
     Route: 048
  5. ALPRAZOLAM. [Concomitant]
     Active Substance: ALPRAZOLAM
     Dosage: .75 MILLIGRAM DAILY;
     Route: 048
  6. SULFARLEM [Concomitant]
     Active Substance: ANETHOLTRITHION
     Dosage: 50 MILLIGRAM DAILY;
     Route: 048
  7. TERCIAN [Concomitant]
     Active Substance: CYAMEMAZINE
     Dosage: 25 MILLIGRAM DAILY;
     Route: 048

REACTIONS (1)
  - Cellulitis [Recovered/Resolved]

NARRATIVE: CASE EVENT DATE: 20150220
